FAERS Safety Report 22293179 (Version 1)
Quarter: 2023Q2

REPORT INFORMATION
  Report Type: Spontaneous
  Country: FR (occurrence: FR)
  Receive Date: 20230508
  Receipt Date: 20230508
  Transmission Date: 20230721
  Serious: Yes (Hospitalization, Other)
  Sender: FDA-Public Use
  Company Number: None

PATIENT
  Age: 74 Year
  Sex: Male

DRUGS (5)
  1. HEPARIN [Suspect]
     Active Substance: HEPARIN SODIUM
     Indication: Prophylaxis
     Route: 042
     Dates: start: 202212
  2. LOVENOX [Suspect]
     Active Substance: ENOXAPARIN SODIUM
  3. APIXABAN [Suspect]
     Active Substance: APIXABAN
     Dates: start: 20221210
  4. ORGARAN [Suspect]
     Active Substance: DANAPAROID SODIUM
     Dates: start: 20221206
  5. ORGARAN [Suspect]
     Active Substance: DANAPAROID SODIUM
     Dosage: UNK
     Dates: start: 20221209

REACTIONS (2)
  - Deep vein thrombosis [Not Recovered/Not Resolved]
  - Heparin-induced thrombocytopenia [Not Recovered/Not Resolved]

NARRATIVE: CASE EVENT DATE: 20230107
